FAERS Safety Report 9295693 (Version 1)
Quarter: 2013Q2

REPORT INFORMATION
  Report Type: Spontaneous
  Country: GB (occurrence: None)
  Receive Date: 20130514
  Receipt Date: 20130514
  Transmission Date: 20140414
  Serious: Yes (Other)
  Sender: FDA-Public Use
  Company Number: GB-1198121

PATIENT
  Age: 42 Year
  Sex: Male

DRUGS (3)
  1. MAXIDEX [Suspect]
     Indication: INTRAOCULAR PRESSURE INCREASED
     Route: 047
     Dates: start: 201109
  2. COSOPT [Concomitant]
  3. IOPIDINE [Concomitant]

REACTIONS (2)
  - Weight increased [None]
  - Off label use [None]
